FAERS Safety Report 5106195-9 (Version None)
Quarter: 2006Q3

REPORT INFORMATION
  Report Type: 
  Country: None (occurrence: None)
  Receive Date: 20060912
  Receipt Date: 20060821
  Transmission Date: 20061208
  Serious: Yes (Life-Threatening)
  Sender: FDA-Public Use
  Company Number: 0510008

PATIENT
  Sex: Male

DRUGS (1)
  1. ORFADIN [Suspect]
     Indication: TYROSINAEMIA
     Dosage: 0.5-1.5 MG/KG MG/KG/DAY, ORAL
     Route: 048
     Dates: start: 20040218, end: 20050205

REACTIONS (11)
  - ALPHA 1 FOETOPROTEIN INCREASED [None]
  - ASPIRATION [None]
  - CARDIO-RESPIRATORY ARREST [None]
  - DRY SKIN [None]
  - HEPATIC FAILURE [None]
  - LIVER TRANSPLANT [None]
  - LOSS OF CONSCIOUSNESS [None]
  - LYMPHOMA [None]
  - PRURITUS [None]
  - RENAL FAILURE [None]
  - THERAPY NON-RESPONDER [None]
